FAERS Safety Report 10395538 (Version 3)
Quarter: 2015Q3

REPORT INFORMATION
  Report Type: Spontaneous
  Country: US (occurrence: US)
  Receive Date: 20140820
  Receipt Date: 20150706
  Transmission Date: 20151125
  Serious: Yes (Life-Threatening, Hospitalization, Other)
  Sender: FDA-Public Use
  Company Number: US-BAYER-2014-120821

PATIENT
  Age: 67 Year
  Sex: Male
  Weight: 97.52 kg

DRUGS (1)
  1. ALEVE [Suspect]
     Active Substance: NAPROXEN SODIUM
     Indication: BACK PAIN
     Dosage: 1 DF, BID
     Route: 048
     Dates: start: 201403, end: 201407

REACTIONS (18)
  - Enteritis [Recovered/Resolved]
  - Large intestinal obstruction [Recovered/Resolved]
  - Aortic valve disease [Recovered/Resolved]
  - Pain [None]
  - Dysuria [Recovered/Resolved]
  - Intentional product use issue [Unknown]
  - Intestinal ulcer [None]
  - Abdominal pain lower [Recovered/Resolved]
  - Cardiac murmur [Recovered/Resolved]
  - Sepsis [Recovered/Resolved]
  - Pneumaturia [None]
  - Tremor [Recovered/Resolved]
  - Abdominal distension [Recovered/Resolved]
  - Pyrexia [Recovered/Resolved]
  - Vesical fistula [None]
  - Dehydration [Recovered/Resolved]
  - Renal impairment [Unknown]
  - Enterocolitis infectious [Recovered/Resolved]

NARRATIVE: CASE EVENT DATE: 201403
